FAERS Safety Report 5087203-0 (Version None)
Quarter: 2006Q3

REPORT INFORMATION
  Report Type: 
  Country: None (occurrence: None)
  Receive Date: 20060821
  Receipt Date: 20060807
  Transmission Date: 20061208
  Serious: Yes (Death, Hospitalization)
  Sender: FDA-Public Use
  Company Number: CIP06001842

PATIENT
  Age: 68 Year
  Sex: Female
  Weight: 70 kg

DRUGS (5)
  1. ACTONEL [Suspect]
     Indication: OSTEOPOROSIS POSTMENOPAUSAL
     Dosage: 35 MG ONCE WEEKLY, ORAL
     Route: 048
     Dates: start: 20060528, end: 20060528
  2. CARDACE (RAMIPRIL) TABLET [Concomitant]
  3. GASEC (OMEPRAZOLE) [Concomitant]
  4. MEDROL [Concomitant]
  5. IMURAN                   (AZATHIOPRINE) TABLET [Concomitant]

REACTIONS (14)
  - ALANINE AMINOTRANSFERASE INCREASED [None]
  - ALVEOLITIS [None]
  - ASPARTATE AMINOTRANSFERASE INCREASED [None]
  - ASTHENIA [None]
  - BLOOD CREATININE INCREASED [None]
  - BLOOD POTASSIUM INCREASED [None]
  - BLOOD SODIUM DECREASED [None]
  - DEHYDRATION [None]
  - DEMENTIA [None]
  - ENTEROCOLITIS [None]
  - IMPAIRED SELF-CARE [None]
  - PNEUMONIA [None]
  - RECTAL HAEMORRHAGE [None]
  - RHEUMATOID FACTOR INCREASED [None]
